FAERS Safety Report 7488239-2 (Version None)
Quarter: 2011Q2

REPORT INFORMATION
  Report Type: 
  Country: None (occurrence: None)
  Receive Date: 20110518
  Receipt Date: 20110506
  Transmission Date: 20111010
  Serious: Yes (Other)
  Sender: FDA-Public Use
  Company Number: PHHY2011DE39031

PATIENT
  Age: 61 Year
  Sex: Female

DRUGS (3)
  1. CORTISONE [Concomitant]
  2. CHEMOTHERAPEUTICS NOS [Concomitant]
  3. ZOLEDRONIC ACID [Suspect]
     Dosage: 1 IN 3 MONTHS
     Route: 042
     Dates: start: 20061201, end: 20080201

REACTIONS (1)
  - OSTEONECROSIS OF JAW [None]
